FAERS Safety Report 14915792 (Version 1)
Quarter: 2018Q2

REPORT INFORMATION
  Report Type: Other
  Country: CN (occurrence: CN)
  Receive Date: 20180518
  Receipt Date: 20180518
  Transmission Date: 20180711
  Serious: Yes (Life-Threatening)
  Sender: FDA-Public Use
  Company Number: CN-GE HEALTHCARE LIFE SCIENCES-2018CSU001901

PATIENT

DRUGS (1)
  1. VISIPAQUE [Suspect]
     Active Substance: IODIXANOL
     Indication: PRODUCT USED FOR UNKNOWN INDICATION
     Dosage: 100 ML, SINGLE
     Route: 013
     Dates: start: 20171228, end: 20171228

REACTIONS (3)
  - Ventricular fibrillation [Recovered/Resolved]
  - Hypotension [Recovered/Resolved]
  - Supraventricular tachycardia [Recovered/Resolved]

NARRATIVE: CASE EVENT DATE: 20171228
